FAERS Safety Report 18288964 (Version 2)
Quarter: 2020Q3

REPORT INFORMATION
  Report Type: Spontaneous
  Country: US (occurrence: US)
  Receive Date: 20200921
  Receipt Date: 20200923
  Transmission Date: 20201103
  Serious: No
  Sender: FDA-Public Use
  Company Number: US-PFIZER INC-2020361399

PATIENT
  Age: 89 Year
  Sex: Female
  Weight: 72.57 kg

DRUGS (1)
  1. FUROSEMIDE. [Suspect]
     Active Substance: FUROSEMIDE
     Indication: PERIPHERAL SWELLING
     Dosage: 40 MG, DAILY (WAS LIKE TAKING 20MG)
     Dates: start: 202008

REACTIONS (3)
  - Drug ineffective [Unknown]
  - Pruritus [Unknown]
  - Erythema [Unknown]
